FAERS Safety Report 16595577 (Version 2)
Quarter: 2019Q3

REPORT INFORMATION
  Report Type: Report from Study
  Country: None (occurrence: BR)
  Receive Date: 20190719
  Receipt Date: 20190828
  Transmission Date: 20191004
  Serious: Yes (Other)
  Sender: FDA-Public Use
  Company Number: BR-ABBVIE-19K-020-2852735-00

PATIENT
  Sex: Female
  Weight: 69 kg

DRUGS (3)
  1. HUMIRA [Suspect]
     Active Substance: ADALIMUMAB
     Indication: RHEUMATOID ARTHRITIS
     Route: 058
     Dates: start: 20170405, end: 201812
  2. HUMIRA [Suspect]
     Active Substance: ADALIMUMAB
     Route: 058
     Dates: start: 20190227, end: 2019
  3. PURAN [Concomitant]
     Active Substance: LEVOTHYROXINE SODIUM
     Indication: THYROID DISORDER
     Route: 048
     Dates: start: 2007

REACTIONS (3)
  - Lymphadenopathy [Recovered/Resolved]
  - Thyroid hormones increased [Unknown]
  - Medullary thyroid cancer [Unknown]
